FAERS Safety Report 8906396 (Version 1)
Quarter: 2012Q4

REPORT INFORMATION
  Report Type: Spontaneous
  Country: FI (occurrence: None)
  Receive Date: 20121107
  Receipt Date: 20121107
  Transmission Date: 20130627
  Serious: Yes (Other)
  Sender: FDA-Public Use
  Company Number: 12002913

PATIENT
  Age: 36 Year
  Sex: Female

DRUGS (1)
  1. DIVIGEL [Suspect]
     Indication: PRODUCT USED FOR UNKNOWN INDICATION
     Route: 062

REACTIONS (3)
  - Palpitations [None]
  - Dyspnoea [None]
  - Bronchospasm [None]
